FAERS Safety Report 7694377-1 (Version None)
Quarter: 2011Q3

REPORT INFORMATION
  Report Type: 
  Country: None (occurrence: None)
  Receive Date: 20110819
  Receipt Date: 20110801
  Transmission Date: 20111222
  Serious: Yes (Death, Hospitalization)
  Sender: FDA-Public Use
  Company Number: BR-MERCK-1108BRA00010

PATIENT
  Age: 46 Year
  Sex: Male

DRUGS (9)
  1. LAMIVUDINE [Concomitant]
     Indication: HIV INFECTION
     Route: 065
  2. ETRAVIRINE [Concomitant]
     Indication: HIV INFECTION
     Route: 065
  3. GANCICLOVIR [Concomitant]
     Route: 051
     Dates: end: 20100101
  4. FILGRASTIM [Concomitant]
     Route: 065
  5. ISENTRESS [Suspect]
     Indication: HIV INFECTION
     Route: 065
  6. DARUNAVIR [Concomitant]
     Indication: HIV INFECTION
     Route: 065
  7. GANCICLOVIR [Concomitant]
     Route: 042
     Dates: end: 20100101
  8. GANCICLOVIR [Concomitant]
     Indication: CYTOMEGALOVIRUS CHORIORETINITIS
     Route: 042
     Dates: end: 20100101
  9. RITONAVIR [Concomitant]
     Indication: HIV INFECTION
     Route: 065

REACTIONS (5)
  - DEATH [None]
  - CYTOMEGALOVIRUS INFECTION [None]
  - PSEUDOMONAS INFECTION [None]
  - SEPTIC SHOCK [None]
  - HERPES SIMPLEX [None]
